FAERS Safety Report 18146388 (Version 1)
Quarter: 2020Q3

REPORT INFORMATION
  Report Type: Report from Study
  Country: ZA (occurrence: ZA)
  Receive Date: 20200813
  Receipt Date: 20200813
  Transmission Date: 20201103
  Serious: Yes (Other)
  Sender: FDA-Public Use
  Company Number: ZA-BAYER-2020-163491

PATIENT
  Age: 48 Year
  Sex: Female

DRUGS (11)
  1. TRAMAHEXAL [Concomitant]
     Active Substance: TRAMADOL HYDROCHLORIDE
     Dosage: 1 DF, BID
  2. CYMBALTA [Concomitant]
     Active Substance: DULOXETINE HYDROCHLORIDE
     Dosage: UNK
  3. LYRICA [Concomitant]
     Active Substance: PREGABALIN
     Dosage: 75 MG, BID
     Route: 048
  4. PIASCLEDINE [PIAS] [Concomitant]
     Dosage: 1 DF, QD
  5. URBANOL [Concomitant]
     Active Substance: CLOBAZAM
     Dosage: 10 MG, QD
  6. MYTROCIN [Concomitant]
     Dosage: 15 MG, QD
  7. BETAFERON [Suspect]
     Active Substance: INTERFERON BETA-1B
     Indication: MULTIPLE SCLEROSIS
     Dosage: 8 MIU, QOD
     Route: 058
     Dates: start: 20170601
  8. CARLOC [Concomitant]
     Active Substance: CARVEDILOL
     Dosage: 12.5 MG, OM
  9. DUPHALAC [Concomitant]
     Active Substance: LACTULOSE
  10. SPIRACTIN [SPIRONOLACTONE] [Concomitant]
     Active Substance: SPIRONOLACTONE
     Dosage: 25 MG, BID
     Route: 048
  11. CARLOC [Concomitant]
     Active Substance: CARVEDILOL
     Dosage: 6.25 MG, QD

REACTIONS (6)
  - Fibromyalgia [Not Recovered/Not Resolved]
  - Joint stiffness [Not Recovered/Not Resolved]
  - Constipation [Not Recovered/Not Resolved]
  - Cardiac failure [Not Recovered/Not Resolved]
  - Musculoskeletal pain [Not Recovered/Not Resolved]
  - Ankylosing spondylitis [Not Recovered/Not Resolved]

NARRATIVE: CASE EVENT DATE: 201812
